FAERS Safety Report 6815164-X (Version None)
Quarter: 2010Q2

REPORT INFORMATION
  Report Type: 
  Country: None (occurrence: None)
  Receive Date: 20100630
  Receipt Date: 20100630
  Transmission Date: 20101027
  Serious: Yes (Other)
  Sender: FDA-Public Use
  Company Number: None

PATIENT
  Sex: Female
  Weight: 61.6892 kg

DRUGS (12)
  1. OXYMETAZOLINE HCL [Suspect]
     Dosage: 3 SPRAYS IN EACH NOSTRIL ONCE NASAL
     Route: 045
  2. ENTOCORT EC [Concomitant]
  3. PENTASA [Concomitant]
  4. LOPERAMIDE HCL [Concomitant]
  5. FEXOFENADINE HCL [Concomitant]
  6. ASMANEX TWISTHALER [Concomitant]
  7. NASONEX [Concomitant]
  8. PROBIOTICS -VSL#3- [Concomitant]
  9. VIT D [Concomitant]
  10. CALCIUM CITRATE [Concomitant]
  11. FERROUS GLUCONATE -IRON- [Concomitant]
  12. ONCE-A-DAY FOR WOMEN MULTIVITAMIN [Concomitant]

REACTIONS (5)
  - ANOSMIA [None]
  - HEMICEPHALALGIA [None]
  - NASAL CONGESTION [None]
  - NASAL DISCOMFORT [None]
  - RHINALGIA [None]
